FAERS Safety Report 8643400 (Version 2)
Quarter: 2014Q1

REPORT INFORMATION
  Report Type: Spontaneous
  Country: US (occurrence: None)
  Receive Date: 20120323
  Receipt Date: 20130305
  Transmission Date: 20141002
  Serious: Yes (Hospitalization)
  Sender: FDA-Public Use
  Company Number: 163-21880-11110617

PATIENT
  Age: 66 Year
  Sex: Female
  Weight: 70.31 kg

DRUGS (20)
  1. REVLIMID [Suspect]
     Indication: PLASMA CELL MYELOMA
     Dosage: 25 MG, X 28 DAYS ON 7 DAYS OFF, PO
     Route: 048
     Dates: start: 20080308
  2. FELODIPINE SR [Concomitant]
  3. LEVOTHYROXINE [Concomitant]
  4. ACEBUTOLOL HCL (ACEBUTOLOL HYDROCHLORIDE) [Concomitant]
  5. ASA (ACETYLSALICYLIC ACID) [Concomitant]
  6. ALENDRONATE SODIUM [Concomitant]
  7. DEXAMETHASONE [Concomitant]
  8. POTASSIUM [Concomitant]
  9. FOSAMAX [Concomitant]
  10. ALLEGRA [Concomitant]
  11. CALCIUM CARBONATE-VITAMIN D (OS-CAL) [Concomitant]
  12. MULTIVITAMINS [Concomitant]
  13. VITAMIN C [Concomitant]
  14. COMPLEX (BECOSYM FORTE) [Concomitant]
  15. NITROGLYCERIN [Concomitant]
  16. SYNTHROID [Concomitant]
  17. DUREZOL (DIFLUPREDNATE) [Concomitant]
  18. KLOR-CON (POTASSIUM CHLORIDE) [Concomitant]
  19. PROCHLORPERAZINE [Concomitant]
  20. FLONASE (FLUTICASONE PROPIONATE) [Concomitant]

REACTIONS (2)
  - Cataract [None]
  - Dizziness [None]
